FAERS Safety Report 4290545-X (Version None)
Quarter: 2004Q1

REPORT INFORMATION
  Report Type: 
  Country: None (occurrence: None)
  Receive Date: 20040209
  Receipt Date: 20040126
  Transmission Date: 20041129
  Serious: Yes (Hospitalization)
  Sender: FDA-Public Use
  Company Number: USA-2004-0012400

PATIENT
  Age: 51 Year
  Sex: Male

DRUGS (10)
  1. MS CONTIN [Suspect]
     Indication: PAIN
     Dosage: 200 MG, Q4TH, UNK
  2. ELAVIL [Concomitant]
  3. KLONOPIN [Concomitant]
  4. EFFEXOR [Concomitant]
  5. POTASSIUM (POTASSIUM) [Concomitant]
  6. GLUCOPHAGE (METFORMIN HYDRCHLORIDE) [Concomitant]
  7. INSULIN, REGULAR (INSULIN) [Concomitant]
  8. GLIPIZIDE [Concomitant]
  9. RISPERDAL [Suspect]
  10. ATIVAN [Concomitant]

REACTIONS (4)
  - CONFUSIONAL STATE [None]
  - HALLUCINATION, VISUAL [None]
  - MEDICATION ERROR [None]
  - SKIN LACERATION [None]
